FAERS Safety Report 12691845 (Version 1)
Quarter: 2016Q3

REPORT INFORMATION
  Report Type: Spontaneous
  Country: JP (occurrence: JP)
  Receive Date: 20160827
  Receipt Date: 20160827
  Transmission Date: 20161109
  Serious: Yes (Other)
  Sender: FDA-Public Use
  Company Number: JP-JNJFOC-20160811491

PATIENT
  Age: 42 Year
  Sex: Female

DRUGS (2)
  1. TYLENOL A [Suspect]
     Active Substance: ACETAMINOPHEN
     Route: 065
  2. TYLENOL A [Suspect]
     Active Substance: ACETAMINOPHEN
     Indication: PRODUCT USED FOR UNKNOWN INDICATION
     Route: 065
     Dates: start: 201503, end: 201503

REACTIONS (1)
  - Drug-induced liver injury [Unknown]
